FAERS Safety Report 5595828-9 (Version None)
Quarter: 2008Q1

REPORT INFORMATION
  Report Type: 
  Country: None (occurrence: None)
  Receive Date: 20080118
  Receipt Date: 20080110
  Transmission Date: 20080703
  Serious: Yes (Other)
  Sender: FDA-Public Use
  Company Number: DE-JNJFOC-20071108277

PATIENT
  Sex: Female
  Weight: 82 kg

DRUGS (3)
  1. INVEGA [Suspect]
     Indication: PSYCHOTIC DISORDER
     Route: 048
  2. GLIANIMON [Concomitant]
     Indication: DRUG USE FOR UNKNOWN INDICATION
     Dosage: 3X10 MG
     Route: 065
  3. DIAZEPAM [Concomitant]
     Indication: DRUG USE FOR UNKNOWN INDICATION
     Dosage: 3X5 MG
     Route: 065

REACTIONS (1)
  - HEPATIC ENZYME INCREASED [None]
